FAERS Safety Report 11362337 (Version 1)
Quarter: 2015Q3

REPORT INFORMATION
  Report Type: Spontaneous
  Country: US (occurrence: US)
  Receive Date: 20150810
  Receipt Date: 20150810
  Transmission Date: 20151125
  Serious: Yes (Other)
  Sender: FDA-Public Use
  Company Number: PHHY2015US092861

PATIENT
  Age: 37 Year
  Sex: Male

DRUGS (4)
  1. HEPARIN [Suspect]
     Active Substance: HEPARIN SODIUM
     Indication: ANTICOAGULANT THERAPY
     Dosage: 80 UNK, UNK
     Route: 040
  2. HEPARIN [Suspect]
     Active Substance: HEPARIN SODIUM
     Dosage: 18 UNK, UNK
     Route: 042
  3. ALTEPLASE [Concomitant]
     Active Substance: ALTEPLASE
     Indication: THROMBOLYSIS
     Dosage: 100 MG, UNK
     Route: 042
  4. ARGATROBAN. [Concomitant]
     Active Substance: ARGATROBAN
     Indication: PRODUCT USED FOR UNKNOWN INDICATION
     Route: 065

REACTIONS (5)
  - Multi-organ failure [Unknown]
  - Antiphospholipid syndrome [Unknown]
  - Angiopathy [Unknown]
  - Heparin-induced thrombocytopenia [Unknown]
  - Liver injury [Unknown]
